FAERS Safety Report 9760048 (Version 1)
Quarter: 2013Q4

REPORT INFORMATION
  Report Type: Spontaneous
  Country: FR (occurrence: FR)
  Receive Date: 20131216
  Receipt Date: 20131216
  Transmission Date: 20140711
  Serious: Yes (Hospitalization)
  Sender: FDA-Public Use
  Company Number: FR-JNJFOC-20131206373

PATIENT
  Age: 43 Year
  Sex: Male

DRUGS (13)
  1. REMICADE [Suspect]
     Indication: ANKYLOSING SPONDYLITIS
     Dosage: ALSO REPORTED AS FEB-2010 TO 17-SEP-2013
     Route: 042
     Dates: start: 20130110
  2. REMICADE [Suspect]
     Indication: ANKYLOSING SPONDYLITIS
     Dosage: ALSO REPORTED AS FEB-2010 TO 17-SEP-2013
     Route: 042
     Dates: start: 20131031
  3. REMICADE [Suspect]
     Indication: ANKYLOSING SPONDYLITIS
     Dosage: ALSO REPORTED AS FEB-2010 TO 17-SEP-2013
     Route: 042
     Dates: start: 201204
  4. KARDEGIC [Concomitant]
     Route: 048
     Dates: start: 201004
  5. LIPANTHYL [Concomitant]
     Indication: HYPERCHOLESTEROLAEMIA
     Route: 048
     Dates: start: 200707
  6. APIDRA [Concomitant]
     Indication: TYPE 2 DIABETES MELLITUS
     Route: 058
     Dates: start: 201004
  7. COAPROVEL [Concomitant]
     Indication: HYPERTENSION
     Route: 048
     Dates: start: 201205
  8. APRANAX [Concomitant]
     Indication: ARTHRITIS
     Route: 048
     Dates: start: 201205
  9. TOPALGIC LP [Concomitant]
     Indication: PAIN
     Route: 065
     Dates: start: 200911
  10. MOPRAL [Concomitant]
     Route: 048
     Dates: start: 200602
  11. ACETAMINOPHEN [Concomitant]
     Indication: PAIN
     Dosage: IF NEEDED
     Route: 048
  12. LANTUS [Concomitant]
     Indication: TYPE 2 DIABETES MELLITUS
     Route: 058
     Dates: start: 201004
  13. GLUCOPHAGE [Concomitant]
     Indication: TYPE 2 DIABETES MELLITUS
     Route: 048
     Dates: start: 200707

REACTIONS (4)
  - Tachycardia [Recovered/Resolved]
  - Hyperthermia [Recovered/Resolved]
  - Chills [Recovered/Resolved]
  - Infusion related reaction [Recovered/Resolved]
